FAERS Safety Report 23744672 (Version 1)
Quarter: 2024Q2

REPORT INFORMATION
  Report Type: Spontaneous
  Country: US (occurrence: None)
  Receive Date: 20240415
  Receipt Date: 20240415
  Transmission Date: 20240715
  Serious: Yes (Other)
  Sender: FDA-Public Use
  Company Number: 2024A088988

PATIENT
  Sex: Male

DRUGS (4)
  1. DALIRESP [Suspect]
     Active Substance: ROFLUMILAST
     Indication: Product used for unknown indication
     Route: 048
  2. OFEV [Suspect]
     Active Substance: NINTEDANIB
     Indication: Pulmonary fibrosis
     Route: 048
  3. OFEV [Suspect]
     Active Substance: NINTEDANIB
     Indication: Interstitial lung disease
     Route: 048
  4. OFEV [Suspect]
     Active Substance: NINTEDANIB
     Indication: Interstitial lung disease
     Route: 048

REACTIONS (5)
  - Pulmonary congestion [Unknown]
  - Pulmonary fibrosis [Unknown]
  - Dysarthria [Unknown]
  - Tremor [Unknown]
  - Chronic obstructive pulmonary disease [Unknown]
